FAERS Safety Report 25089569 (Version 4)
Quarter: 2025Q3

REPORT INFORMATION
  Report Type: Spontaneous
  Country: MX (occurrence: MX)
  Receive Date: 20250318
  Receipt Date: 20250808
  Transmission Date: 20251021
  Serious: Yes (Death, Life-Threatening, Hospitalization, Other)
  Sender: SANDOZ
  Company Number: MX-002147023-NVSC2025MX043067

PATIENT
  Sex: Male
  Weight: 134 kg

DRUGS (25)
  1. METFORMIN [Suspect]
     Active Substance: METFORMIN HYDROCHLORIDE
     Indication: Product used for unknown indication
     Dosage: 1 DF, QD; 1 DOSAGE FORM, QD
     Route: 065
     Dates: start: 2015
  2. TELMISARTAN [Suspect]
     Active Substance: TELMISARTAN
     Indication: Product used for unknown indication
     Dosage: 2 DF, QD; 1 DOSAGE FORM, BID (IN THE MORNING AND  AT NIGHT)
     Route: 065
  3. TASIGNA [Suspect]
     Active Substance: NILOTINIB
     Dosage: 2 DOSAGE FORM, Q12H
     Route: 048
     Dates: start: 202307, end: 202412
  4. TASIGNA [Suspect]
     Active Substance: NILOTINIB
     Indication: Chronic myeloid leukaemia
     Dosage: 3 DF, QD; 3 DOSAGE FORM, QD (IN THE MORNING)
     Route: 048
  5. TASIGNA [Suspect]
     Active Substance: NILOTINIB
     Dosage: 3 DOSAGE FORM, Q12H
     Route: 048
     Dates: start: 202412
  6. TASIGNA [Suspect]
     Active Substance: NILOTINIB
     Route: 048
  7. VANCOMYCIN [Suspect]
     Active Substance: VANCOMYCIN
     Indication: Product used for unknown indication
     Route: 065
  8. ALLOPURINOL [Concomitant]
     Active Substance: ALLOPURINOL
     Indication: Blood uric acid
     Dosage: 1 DOSAGE FORM, QD
     Route: 048
     Dates: start: 2015
  9. AMLODIPINE [Concomitant]
     Active Substance: AMLODIPINE BESYLATE
     Indication: Product used for unknown indication
     Dosage: UNK, Q24H
     Route: 065
  10. BEZAFIBRATE [Concomitant]
     Active Substance: BEZAFIBRATE
     Indication: Dyslipidaemia
     Dosage: 1 DOSAGE FORM, QD
     Route: 048
  11. ESCITALOPRAM [Concomitant]
     Active Substance: ESCITALOPRAM OXALATE
     Indication: Depression
     Dosage: 1 DF, QD
     Route: 048
     Dates: start: 2022
  12. ESCITALOPRAM [Concomitant]
     Active Substance: ESCITALOPRAM OXALATE
     Indication: Anxiety
  13. EZETIMIBE [Concomitant]
     Active Substance: EZETIMIBE
     Indication: Dyslipidaemia
     Dosage: 1 DOSAGE FORM, QD (EZETIMIBE WITH  ZIMBSTINE)
     Route: 048
  14. FILGRASTIM [Concomitant]
     Active Substance: FILGRASTIM
     Indication: Product used for unknown indication
     Route: 065
  15. HYDROCHLOROTHIAZIDE [Concomitant]
     Active Substance: HYDROCHLOROTHIAZIDE
     Indication: Hypertension
     Dosage: 1 DOSAGE FORM, QD
     Route: 048
     Dates: start: 202407
  16. LEVOTHYROXINE [Concomitant]
     Active Substance: LEVOTHYROXINE
     Dosage: 1 DOSAGE FORM (IN THE MORNING)
     Route: 065
     Dates: start: 2021
  17. LEVOTHYROXINE [Concomitant]
     Active Substance: LEVOTHYROXINE
     Indication: Hypothyroidism
     Dosage: 1 DOSAGE FORM, QD
     Route: 065
     Dates: start: 2021
  18. LOSARTAN [Concomitant]
     Active Substance: LOSARTAN
     Indication: Hypertension
     Dosage: 50 MG, Q12H
     Route: 048
     Dates: start: 2015, end: 202407
  19. MERCAPTOPURINE [Concomitant]
     Active Substance: MERCAPTOPURINE
     Indication: Product used for unknown indication
     Route: 065
  20. METFORMIN [Concomitant]
     Active Substance: METFORMIN HYDROCHLORIDE
     Indication: Diabetes mellitus
     Dosage: 1 DOSAGE FORM, QD, 850 MG
     Route: 048
     Dates: start: 2015
  21. PRAZOSIN [Concomitant]
     Active Substance: PRAZOSIN
     Indication: Hypertension
     Dosage: 1 DOSAGE FORM, QD
     Route: 065
  22. PRAZOSIN [Concomitant]
     Active Substance: PRAZOSIN
     Dosage: 1 DOSAGE FORM, Q12H
     Route: 048
     Dates: start: 2015, end: 202412
  23. PREDNISONE [Concomitant]
     Active Substance: PREDNISONE
     Indication: Product used for unknown indication
     Route: 065
  24. TELMISARTAN [Concomitant]
     Active Substance: TELMISARTAN
     Indication: Hypertension
     Route: 048
     Dates: start: 202407
  25. TELMISARTAN AND HYDROCHLOROTHIAZIDE [Concomitant]
     Active Substance: HYDROCHLOROTHIAZIDE\TELMISARTAN
     Indication: Product used for unknown indication
     Route: 065

REACTIONS (44)
  - Acute lymphocytic leukaemia [Fatal]
  - Dyspnoea [Fatal]
  - Soft tissue infection [Fatal]
  - Septic shock [Fatal]
  - Decreased appetite [Fatal]
  - Platelet count decreased [Unknown]
  - Pyrexia [Unknown]
  - Haematotoxicity [Unknown]
  - Blood creatinine increased [Unknown]
  - Haemoglobin decreased [Unknown]
  - White blood cell count increased [Unknown]
  - Blast cells present [Unknown]
  - Spinal pain [Recovered/Resolved]
  - Malaise [Unknown]
  - Chronic myeloid leukaemia transformation [Unknown]
  - Blindness unilateral [Unknown]
  - Delirium [Unknown]
  - Hypothyroidism [Unknown]
  - Unresponsive to stimuli [Unknown]
  - Hydrocephalus [Unknown]
  - Chronic myeloid leukaemia transformation [Unknown]
  - Neuropathy peripheral [Not Recovered/Not Resolved]
  - Dizziness [Unknown]
  - Hypertension [Unknown]
  - Renal pain [Unknown]
  - Feeling abnormal [Unknown]
  - Paraesthesia [Unknown]
  - Metabolic syndrome [Unknown]
  - Sleep apnoea syndrome [Unknown]
  - Glucose tolerance impaired [Unknown]
  - Intentional product misuse [Unknown]
  - Carpal tunnel syndrome [Not Recovered/Not Resolved]
  - Anal incontinence [Unknown]
  - Haemorrhage [Unknown]
  - Eye haemorrhage [Unknown]
  - Vomiting [Unknown]
  - Oxygen saturation decreased [Unknown]
  - Radiation injury [Unknown]
  - Otorrhoea [Unknown]
  - Hypotension [Unknown]
  - Blood glucose increased [Unknown]
  - Dysarthria [Unknown]
  - Discharge [Unknown]
  - Abdominal pain upper [Unknown]

NARRATIVE: CASE EVENT DATE: 20230101
